FAERS Safety Report 9786020 (Version 3)
Quarter: 2014Q2

REPORT INFORMATION
  Report Type: Spontaneous
  Country: US (occurrence: US)
  Receive Date: 20131227
  Receipt Date: 20140611
  Transmission Date: 20141212
  Serious: Yes (Other)
  Sender: FDA-Public Use
  Company Number: US-PFIZER INC-2013367462

PATIENT
  Age: 49 Year
  Sex: Female
  Weight: 73 kg

DRUGS (9)
  1. LIPITOR [Suspect]
     Indication: LOW DENSITY LIPOPROTEIN INCREASED
     Dosage: 10 MG, 1X/DAY
     Route: 048
     Dates: start: 20060101
  2. LIPITOR [Suspect]
     Indication: CARDIOVASCULAR EVENT PROPHYLAXIS
     Dosage: 20 MG, 1X/DAY
     Route: 048
     Dates: start: 20091109
  3. LIPITOR [Suspect]
     Dosage: 40 MG, 1X/DAY
     Route: 048
     Dates: start: 20100604, end: 20100805
  4. DOXYCYCLINE [Concomitant]
     Dosage: 100 MG, UNK
     Dates: start: 20090403
  5. CLONIDINE [Concomitant]
     Indication: HOT FLUSH
     Dosage: 0.1 MG, 1X/DAY (AT BEDTIME)
     Route: 048
     Dates: start: 20100604
  6. CLONIDINE [Concomitant]
     Dosage: 0.2 MG, 1X/DAY
     Route: 048
     Dates: start: 20100904
  7. FLUCONAZOLE [Concomitant]
     Dosage: 150 MG, 1X/DAY
     Route: 048
     Dates: start: 20091109
  8. BENICAR [Concomitant]
     Dosage: 20 MG, 1X/DAY
     Route: 048
     Dates: start: 20100604
  9. BENICAR [Concomitant]
     Dosage: 10 MG, 1X/DAY
     Route: 048
     Dates: start: 20100901

REACTIONS (1)
  - Type 2 diabetes mellitus [Not Recovered/Not Resolved]
